FAERS Safety Report 19673195 (Version 1)
Quarter: 2021Q3

REPORT INFORMATION
  Report Type: Spontaneous
  Country: US (occurrence: US)
  Receive Date: 20210809
  Receipt Date: 20210809
  Transmission Date: 20211014
  Serious: Yes (Other)
  Sender: FDA-Public Use
  Company Number: US-ACCORD-159488

PATIENT
  Age: 55 Year
  Sex: Female
  Weight: 79.38 kg

DRUGS (9)
  1. CARBOPLATIN. [Concomitant]
     Active Substance: CARBOPLATIN
  2. CYCLOPHOSPHAMIDE/CYCLOPHOSPHAMIDE MONOHYDRATE [Concomitant]
     Active Substance: CYCLOPHOSPHAMIDE
  3. DOCETAXEL ACCORD [Suspect]
     Active Substance: DOCETAXEL
     Indication: BREAST CANCER
     Dates: start: 20160428, end: 20160721
  4. DOCETAXEL ACCORD [Suspect]
     Active Substance: DOCETAXEL
     Indication: BREAST CANCER
     Dates: start: 20091208, end: 20100408
  5. ALEVE [Concomitant]
     Active Substance: NAPROXEN SODIUM
     Dates: start: 2010
  6. PARACETAMOL [Concomitant]
     Active Substance: ACETAMINOPHEN
     Dates: start: 2009, end: 2010
  7. TAMOXIFEN [Concomitant]
     Active Substance: TAMOXIFEN
  8. DOXORUBICIN [Concomitant]
     Active Substance: DOXORUBICIN
  9. HERCEPTIN [Concomitant]
     Active Substance: TRASTUZUMAB

REACTIONS (1)
  - Alopecia [Not Recovered/Not Resolved]

NARRATIVE: CASE EVENT DATE: 201010
